FAERS Safety Report 9556786 (Version 1)
Quarter: 2013Q3

REPORT INFORMATION
  Report Type: Spontaneous
  Country: US (occurrence: None)
  Receive Date: 20130726
  Receipt Date: 20130726
  Transmission Date: 20140515
  Serious: No
  Sender: FDA-Public Use
  Company Number: UTC-016724

PATIENT
  Age: 66 Year
  Sex: Female

DRUGS (4)
  1. REMODULIN [Suspect]
     Indication: PULMONARY ARTERIAL HYPERTENSION
     Dosage: 113.76 UG/KG (0.079 UG/KG, 1 IN 1 MIN) , INTRAVENOUS
     Route: 042
     Dates: start: 20110207
  2. ACIRCA (TADALAFIL ) [Concomitant]
  3. COUMADIN (WARFARIN SODIUM) [Concomitant]
  4. DIURETICS (DIURETICS) [Concomitant]

REACTIONS (1)
  - Device related infection [None]
